FAERS Safety Report 9372673 (Version 1)
Quarter: 2013Q2

REPORT INFORMATION
  Report Type: Spontaneous
  Country: US (occurrence: US)
  Receive Date: 20130627
  Receipt Date: 20130627
  Transmission Date: 20140414
  Serious: Yes (Other)
  Sender: FDA-Public Use
  Company Number: US-ROXANE LABORATORIES, INC.-2013-RO-01037RO

PATIENT
  Sex: Female

DRUGS (3)
  1. FLECAINIDE [Suspect]
     Indication: SUPRAVENTRICULAR TACHYCARDIA
     Dosage: 100 MG
     Route: 048
  2. TYLENOL [Concomitant]
  3. MIRALAX [Concomitant]

REACTIONS (7)
  - Electrocardiogram QT prolonged [Unknown]
  - Oropharyngeal pain [Not Recovered/Not Resolved]
  - Muscular weakness [Not Recovered/Not Resolved]
  - Gastrointestinal hypomotility [Not Recovered/Not Resolved]
  - Tinnitus [Not Recovered/Not Resolved]
  - Mouth ulceration [Not Recovered/Not Resolved]
  - Anxiety [Not Recovered/Not Resolved]
